FAERS Safety Report 15155766 (Version 1)
Quarter: 2018Q3

REPORT INFORMATION
  Report Type: Spontaneous
  Country: DE (occurrence: DE)
  Receive Date: 20180717
  Receipt Date: 20180717
  Transmission Date: 20181010
  Serious: Yes (Hospitalization)
  Sender: FDA-Public Use
  Company Number: DE-US WORLDMEDS, LLC-STA_00018748

PATIENT
  Age: 68 Year

DRUGS (1)
  1. APOMORPHINE HYDROCHLORIDE [Suspect]
     Active Substance: APOMORPHINE HYDROCHLORIDE
     Route: 058

REACTIONS (4)
  - Nausea [Unknown]
  - Pyrexia [Unknown]
  - Bacterial infection [Unknown]
  - Somnolence [Unknown]

NARRATIVE: CASE EVENT DATE: 201006
